FAERS Safety Report 5632491-2 (Version None)
Quarter: 2008Q1

REPORT INFORMATION
  Report Type: 
  Country: None (occurrence: None)
  Receive Date: 20080131
  Receipt Date: 20071022
  Transmission Date: 20080703
  Serious: No
  Sender: FDA-Public Use
  Company Number: 163-21880-07101292

PATIENT
  Age: 56 Year
  Sex: Male

DRUGS (4)
  1. REVLIMID [Suspect]
     Indication: MULTIPLE MYELOMA
     Dosage: 10 MG, 1 IN 1 D, ORAL
     Route: 048
     Dates: start: 20070625
  2. COUMADIN [Concomitant]
  3. ZOCOR [Concomitant]
  4. ACYCLOVIR [Concomitant]

REACTIONS (2)
  - AGEUSIA [None]
  - ANOSMIA [None]
